FAERS Safety Report 6039456-X (Version None)
Quarter: 2009Q1

REPORT INFORMATION
  Report Type: 
  Country: None (occurrence: None)
  Receive Date: 20090114
  Receipt Date: 20090102
  Transmission Date: 20090719
  Serious: Yes (Other)
  Sender: FDA-Public Use
  Company Number: 232882K08USA

PATIENT
  Age: 27 Year
  Sex: Female

DRUGS (5)
  1. REBIF [Suspect]
     Indication: MULTIPLE SCLEROSIS
     Dosage: 44 MCG, 3 IN 1 WEEKS, SUBCUTANEOUS
     Route: 058
     Dates: start: 20021029
  2. IBUPROFEN [Concomitant]
  3. FOLIC ACID [Concomitant]
  4. ANTIVERT [Concomitant]
  5. XANAX [Concomitant]

REACTIONS (3)
  - CONVULSION [None]
  - DIZZINESS [None]
  - LOSS OF CONSCIOUSNESS [None]
